FAERS Safety Report 5423075-X (Version None)
Quarter: 2007Q3

REPORT INFORMATION
  Report Type: 
  Country: None (occurrence: None)
  Receive Date: 20070821
  Receipt Date: 20070813
  Transmission Date: 20080115
  Serious: Yes (Other)
  Sender: FDA-Public Use
  Company Number: 236056K06USA

PATIENT
  Age: 59 Year
  Sex: Male

DRUGS (3)
  1. REBIF [Suspect]
     Indication: MULTIPLE SCLEROSIS
     Dosage: 22 MCG, 3 IN 1 WEEKS, SUBCUTANEOUS
     Route: 058
     Dates: start: 20040420
  2. CHOLESTEROL LOWERING MEDICATION (CHOLESTEROL- AND TRIGLYCERIDE REDUCER [Concomitant]
  3. BLOOD PRESSURE MEDICATION [UNSPECIFIED] (ANTIHYPERTENSIVES) [Concomitant]

REACTIONS (1)
  - TONGUE NEOPLASM BENIGN [None]
